FAERS Safety Report 24007796 (Version 3)
Quarter: 2025Q1

REPORT INFORMATION
  Report Type: Report from Study
  Country: US (occurrence: US)
  Receive Date: 20240625
  Receipt Date: 20250207
  Transmission Date: 20250408
  Serious: Yes (Other)
  Sender: SANOFI AVENTIS
  Company Number: US-SA-SAC20240617000670

PATIENT
  Age: 57 Year
  Sex: Female

DRUGS (1)
  1. AVALGLUCOSIDASE ALFA-NGPT [Suspect]
     Active Substance: AVALGLUCOSIDASE ALFA-NGPT
     Indication: Glycogen storage disease type II
     Dosage: 1200 (UNIT NOT PROVIDED), QOW
     Route: 042
     Dates: start: 20240522

REACTIONS (3)
  - Inclusion body myositis [Not Recovered/Not Resolved]
  - Muscular weakness [Not Recovered/Not Resolved]
  - Sleep apnoea syndrome [Not Recovered/Not Resolved]

NARRATIVE: CASE EVENT DATE: 20240101
